FAERS Safety Report 10314346 (Version 3)
Quarter: 2014Q3

REPORT INFORMATION
  Report Type: Spontaneous
  Country: DE (occurrence: DE)
  Receive Date: 20140718
  Receipt Date: 20140825
  Transmission Date: 20150326
  Serious: Yes (Disabling, Other)
  Sender: FDA-Public Use
  Company Number: DE-GLAXOSMITHKLINE-D0084836A

PATIENT
  Age: 68 Year
  Sex: Male
  Weight: 98 kg

DRUGS (8)
  1. HCT [Concomitant]
     Active Substance: HYDROCHLOROTHIAZIDE
     Dosage: 12.5MG PER DAY
     Route: 065
  2. DUODART [Suspect]
     Active Substance: DUTASTERIDE\TAMSULOSIN
     Indication: BENIGN PROSTATIC HYPERPLASIA
     Route: 048
     Dates: start: 201305
  3. VALSARTAN. [Concomitant]
     Active Substance: VALSARTAN
     Dosage: 240MG PER DAY
     Route: 065
  4. METOPROLOL SUCCINATE. [Concomitant]
     Active Substance: METOPROLOL SUCCINATE
     Dosage: 142.5MG PER DAY
     Route: 065
  5. ASS 100 [Concomitant]
     Active Substance: ASPIRIN
     Route: 065
  6. LOVASTATIN. [Concomitant]
     Active Substance: LOVASTATIN
     Dosage: 20MG PER DAY
     Route: 065
  7. AMLODIPIN [Concomitant]
     Active Substance: AMLODIPINE BESYLATE
     Dosage: 5MG TWICE PER DAY
     Route: 065
  8. ALLOPURINOL 300 [Concomitant]
     Active Substance: ALLOPURINOL
     Dosage: 150MG PER DAY
     Route: 065

REACTIONS (1)
  - Cardiac valve fibroelastoma [Recovered/Resolved with Sequelae]

NARRATIVE: CASE EVENT DATE: 201305
